FAERS Safety Report 20492316 (Version 1)
Quarter: 2022Q1

REPORT INFORMATION
  Report Type: Spontaneous
  Country: US (occurrence: US)
  Receive Date: 20220218
  Receipt Date: 20220218
  Transmission Date: 20220424
  Serious: No
  Sender: FDA-Public Use
  Company Number: US-BRISTOL-MYERS SQUIBB COMPANY-BMS-2022-022856

PATIENT
  Sex: Female

DRUGS (1)
  1. SPRYCEL [Suspect]
     Active Substance: DASATINIB
     Indication: Product used for unknown indication
     Dosage: UNAVAILABLE
     Route: 065

REACTIONS (6)
  - Feeding disorder [Unknown]
  - Weight increased [Unknown]
  - Sleep disorder [Unknown]
  - Swelling face [Unknown]
  - Rash [Unknown]
  - Breast pain [Unknown]
